FAERS Safety Report 7878835-2 (Version None)
Quarter: 2011Q4

REPORT INFORMATION
  Report Type: 
  Country: None (occurrence: None)
  Receive Date: 20111021
  Receipt Date: 20110602
  Transmission Date: 20120403
  Serious: Yes (Other)
  Sender: FDA-Public Use
  Company Number: ALL1-2011-01746

PATIENT
  Age: 41 Year
  Sex: Female
  Weight: 122.4 kg

DRUGS (2)
  1. VYVANSE [Suspect]
     Indication: ATTENTION DEFICIT/HYPERACTIVITY DISORDER
     Dosage: 40 MG, 1X/DAY;QD, ORAL, 20 MG, 1X/DAY;QD, ORAL
     Route: 048
     Dates: start: 20110401, end: 20110401
  2. VYVANSE [Suspect]
     Indication: ATTENTION DEFICIT/HYPERACTIVITY DISORDER
     Dosage: 40 MG, 1X/DAY;QD, ORAL, 20 MG, 1X/DAY;QD, ORAL
     Route: 048
     Dates: start: 20110501, end: 20110602

REACTIONS (3)
  - PSYCHOTIC DISORDER [None]
  - VISION BLURRED [None]
  - DISTURBANCE IN ATTENTION [None]
